FAERS Safety Report 10378905 (Version 2)
Quarter: 2014Q3

REPORT INFORMATION
  Report Type: Report from Study
  Country: US (occurrence: US)
  Receive Date: 20140812
  Receipt Date: 20140922
  Transmission Date: 20150326
  Serious: Yes (Death, Hospitalization, Other)
  Sender: FDA-Public Use
  Company Number: US-TAKEDA-2014MPI002127

PATIENT
  Age: 95 Year
  Sex: Female

DRUGS (2)
  1. VELCADE [Suspect]
     Active Substance: BORTEZOMIB
     Indication: PLASMA CELL MYELOMA
     Dosage: 1.3 MG/M2, UNK
     Route: 042
     Dates: start: 20110504, end: 20120716
  2. DOXIL [Suspect]
     Active Substance: DOXORUBICIN HYDROCHLORIDE
     Indication: PLASMA CELL MYELOMA
     Dosage: 40 MG/M2, UNK
     Route: 042
     Dates: start: 20120720, end: 20121012

REACTIONS (8)
  - Multi-organ failure [Fatal]
  - Renal failure acute [Fatal]
  - Urinary tract infection [Fatal]
  - Sepsis [Fatal]
  - Plasma cell myeloma [Fatal]
  - Deep vein thrombosis [Fatal]
  - Hypotension [Fatal]
  - Hyperglycaemia [Fatal]

NARRATIVE: CASE EVENT DATE: 20121023
